FAERS Safety Report 14780284 (Version 1)
Quarter: 2018Q2

REPORT INFORMATION
  Report Type: Spontaneous
  Country: BR (occurrence: BR)
  Receive Date: 20180419
  Receipt Date: 20180419
  Transmission Date: 20180711
  Serious: Yes (Life-Threatening, Hospitalization, Other)
  Sender: FDA-Public Use
  Company Number: BR-BAUSCH-BL-2018-010262

PATIENT
  Age: 22 Year
  Sex: Female

DRUGS (4)
  1. FOLIC ACID. [Concomitant]
     Active Substance: FOLIC ACID
     Indication: HYPEREMESIS GRAVIDARUM
  2. METOCLOPRAMIDE. [Suspect]
     Active Substance: METOCLOPRAMIDE
     Indication: HYPEREMESIS GRAVIDARUM
     Dosage: ABOUT 45 DAYS
     Route: 065
  3. VITAMIN B6 [Concomitant]
     Active Substance: PYRIDOXINE HYDROCHLORIDE
     Indication: HYPEREMESIS GRAVIDARUM
     Dosage: FOR ABOUT 45 DAYS
  4. DIMENHYDRINATE. [Concomitant]
     Active Substance: DIMENHYDRINATE
     Indication: HYPEREMESIS GRAVIDARUM
     Dosage: FOR ABOUT 45 DAYS

REACTIONS (10)
  - Respiratory failure [Unknown]
  - Maternal exposure during pregnancy [Unknown]
  - Hepatic enzyme increased [Unknown]
  - Foetal distress syndrome [Unknown]
  - Anaemia [Unknown]
  - Acute kidney injury [Unknown]
  - Hypernatraemia [Unknown]
  - Neuroleptic malignant syndrome [Unknown]
  - Foetal death [Unknown]
  - Metabolic acidosis [Unknown]
